FAERS Safety Report 15198407 (Version 1)
Quarter: 2018Q3

REPORT INFORMATION
  Report Type: Spontaneous
  Country: US (occurrence: US)
  Receive Date: 20180627
  Receipt Date: 20180627
  Transmission Date: 20181010
  Serious: Yes (Hospitalization, Disabling, Other)
  Sender: FDA-Public Use
  Company Number: None

PATIENT
  Age: 21 Year
  Sex: Female
  Weight: 90.49 kg

DRUGS (7)
  1. IBUPROFEN. [Concomitant]
     Active Substance: IBUPROFEN
  2. DIAMOX SEQUELS [Concomitant]
     Active Substance: ACETAZOLAMIDE
  3. VALACYCLOVIR [Concomitant]
     Active Substance: VALACYCLOVIR HYDROCHLORIDE
  4. MIRENA [Suspect]
     Active Substance: LEVONORGESTREL
     Dates: start: 20151220, end: 20171220
  5. ZOLOFT [Concomitant]
     Active Substance: SERTRALINE HYDROCHLORIDE
  6. GABBAPENTIN [Concomitant]
     Active Substance: GABAPENTIN
  7. KLONOPIN [Concomitant]
     Active Substance: CLONAZEPAM

REACTIONS (8)
  - Loss of employment [None]
  - Idiopathic intracranial hypertension [None]
  - Nervous system disorder [None]
  - Ill-defined disorder [None]
  - Adverse drug reaction [None]
  - Weight increased [None]
  - Suicide attempt [None]
  - Emotional disorder [None]

NARRATIVE: CASE EVENT DATE: 20170630
